FAERS Safety Report 7047885-0 (Version None)
Quarter: 2010Q4

REPORT INFORMATION
  Report Type: 
  Country: None (occurrence: None)
  Receive Date: 20101015
  Receipt Date: 20100907
  Transmission Date: 20110411
  Serious: Yes (Death, Other)
  Sender: FDA-Public Use
  Company Number: US-BAXTER-2010BH001201

PATIENT
  Age: 38 Year
  Sex: Female

DRUGS (9)
  1. HEPARIN SODIUM INJECTION [Suspect]
     Indication: ARTERIAL THROMBOSIS
     Route: 042
     Dates: start: 20080111, end: 20080111
  2. HEPARIN SODIUM INJECTION [Suspect]
     Route: 042
     Dates: start: 20080111, end: 20080111
  3. HEPARIN SODIUM INJECTION [Suspect]
     Route: 042
     Dates: start: 20080111, end: 20080111
  4. HEPARIN SODIUM INJECTION [Suspect]
     Route: 042
     Dates: start: 20080111, end: 20080111
  5. HEPARIN SODIUM INJECTION [Suspect]
     Route: 042
     Dates: start: 20080111, end: 20080111
  6. HEPARIN SODIUM INJECTION [Suspect]
     Route: 050
     Dates: start: 20080111, end: 20080111
  7. HEPARIN SODIUM INJECTION [Suspect]
     Route: 042
     Dates: start: 20080112, end: 20080112
  8. XANAX [Concomitant]
     Indication: PRODUCT USED FOR UNKNOWN INDICATION
     Route: 065
  9. IBUPROFEN [Concomitant]
     Indication: PRODUCT USED FOR UNKNOWN INDICATION
     Route: 065

REACTIONS (3)
  - DISSEMINATED INTRAVASCULAR COAGULATION [None]
  - HAEMODYNAMIC INSTABILITY [None]
  - MULTI-ORGAN FAILURE [None]
